FAERS Safety Report 18200807 (Version 1)
Quarter: 2020Q3

REPORT INFORMATION
  Report Type: Other
  Country: DE (occurrence: DE)
  Receive Date: 20200827
  Receipt Date: 20200827
  Transmission Date: 20201103
  Serious: Yes (Other)
  Sender: FDA-Public Use
  Company Number: DE-HEALTHCARE PHARMACEUTICALS LTD.-2089071

PATIENT
  Sex: Male

DRUGS (2)
  1. CISPLATIN. [Suspect]
     Active Substance: CISPLATIN
     Route: 065
  2. DOXORUBICIN HYDROCHLORIDE. [Suspect]
     Active Substance: DOXORUBICIN HYDROCHLORIDE
     Indication: PANCREATOBLASTOMA
     Route: 065

REACTIONS (5)
  - Metastases to lymph nodes [Unknown]
  - Malignant peritoneal neoplasm [Unknown]
  - Neoplasm progression [Unknown]
  - Tumour invasion [Unknown]
  - Disease progression [Unknown]
